FAERS Safety Report 5120457-0 (Version None)
Quarter: 2006Q4

REPORT INFORMATION
  Report Type: 
  Country: None (occurrence: None)
  Receive Date: 20061004
  Receipt Date: 20060717
  Transmission Date: 20070319
  Serious: Yes (Other)
  Sender: FDA-Public Use
  Company Number: 2006UW14560

PATIENT
  Age: 78 Year
  Sex: Female
  Weight: 96.6 kg

DRUGS (3)
  1. ARIMIDEX [Suspect]
     Indication: BREAST CANCER
     Route: 048
     Dates: start: 20060101
  2. SYNTHROID [Concomitant]
  3. COUMADIN [Concomitant]

REACTIONS (7)
  - ARTHRALGIA [None]
  - GINGIVAL DISORDER [None]
  - GINGIVAL SWELLING [None]
  - JOINT STIFFNESS [None]
  - NAUSEA [None]
  - ORAL MUCOSAL EXFOLIATION [None]
  - STOMATITIS [None]
